FAERS Safety Report 21312505 (Version 1)
Quarter: 2022Q3

REPORT INFORMATION
  Report Type: Spontaneous
  Country: US (occurrence: None)
  Receive Date: 20220909
  Receipt Date: 20220909
  Transmission Date: 20221027
  Serious: No
  Sender: FDA-Public Use
  Company Number: US-ARIS GLOBAL-202206-1156

PATIENT
  Sex: Female
  Weight: 80.086 kg

DRUGS (19)
  1. OXERVATE [Suspect]
     Active Substance: CENEGERMIN-BKBJ
     Indication: Neurotrophic keratopathy
     Route: 047
     Dates: start: 20220524
  2. OXERVATE [Suspect]
     Active Substance: CENEGERMIN-BKBJ
     Indication: Hypoaesthesia eye
  3. TRAZODONE HCL [Concomitant]
     Active Substance: TRAZODONE HYDROCHLORIDE
  4. COLACE [Concomitant]
     Active Substance: DOCUSATE SODIUM
  5. METOPROLOL TARTRATE [Concomitant]
     Active Substance: METOPROLOL TARTRATE
  6. NORTRIPTYLINE HYDROCHLORIDE [Concomitant]
     Active Substance: NORTRIPTYLINE HYDROCHLORIDE
  7. LANTUS [Concomitant]
     Active Substance: INSULIN GLARGINE
     Dosage: 100/ML VIAL
  8. NOVOLOG [Concomitant]
     Active Substance: INSULIN ASPART
     Dosage: 100/ML VIAL
  9. BAXDELA [Concomitant]
     Active Substance: DELAFLOXACIN MEGLUMINE
  10. HYDROXYZINE PAMOATE [Concomitant]
     Active Substance: HYDROXYZINE PAMOATE
  11. VENLAFAXINE HCL [Concomitant]
     Active Substance: VENLAFAXINE HYDROCHLORIDE
     Dosage: EXTENDED RELEASE FOR 24 HOURS
  12. SILVADENE [Concomitant]
     Active Substance: SILVER SULFADIAZINE
  13. MUPIROCIN [Concomitant]
     Active Substance: MUPIROCIN
  14. NEURONTIN [Concomitant]
     Active Substance: GABAPENTIN
  15. FENTANYL [Concomitant]
     Active Substance: FENTANYL
     Dosage: 12 MCG/HOUR PATCH FOR THREE DAYS,72 HOURS
  16. BYDUREON BCISE [Concomitant]
     Active Substance: EXENATIDE
     Dosage: 2MG/0.85ML AUTO INJECTOR
  17. ZOCOR [Concomitant]
     Active Substance: SIMVASTATIN
  18. ACETAMINOPHEN\HYDROCODONE [Concomitant]
     Active Substance: ACETAMINOPHEN\HYDROCODONE
  19. HYDROCORTISONE [Concomitant]
     Active Substance: HYDROCORTISONE

REACTIONS (2)
  - Eye pain [Unknown]
  - Wrong technique in product usage process [Unknown]
